FAERS Safety Report 10601147 (Version 2)
Quarter: 2014Q4

REPORT INFORMATION
  Report Type: Spontaneous
  Country: CH (occurrence: CH)
  Receive Date: 20141124
  Receipt Date: 20141208
  Transmission Date: 20150529
  Serious: Yes (Hospitalization)
  Sender: FDA-Public Use
  Company Number: CH-JNJFOC-20141110946

PATIENT
  Age: 83 Year
  Sex: Female

DRUGS (16)
  1. GYNO TARDYFERON [Concomitant]
     Route: 065
  2. ASPIRIN CARDIO [Suspect]
     Active Substance: ASPIRIN
     Indication: ANTICOAGULANT THERAPY
     Route: 048
     Dates: start: 2014, end: 201407
  3. PANTOZOL [Concomitant]
     Active Substance: PANTOPRAZOLE SODIUM
     Route: 048
  4. PREDNISON [Suspect]
     Active Substance: PREDNISONE
     Indication: RHEUMATOID ARTHRITIS
     Route: 048
     Dates: start: 201405
  5. XARELTO [Suspect]
     Active Substance: RIVAROXABAN
     Indication: CEREBROVASCULAR ACCIDENT PROPHYLAXIS
     Route: 048
     Dates: start: 2014, end: 201407
  6. CALCIMAGON [Concomitant]
     Active Substance: CALCIUM
     Route: 048
  7. NITRODERM [Concomitant]
     Active Substance: NITROGLYCERIN
     Route: 062
  8. OXYCONTIN [Concomitant]
     Active Substance: OXYCODONE HYDROCHLORIDE
     Route: 048
  9. ZINK VERLA [Concomitant]
     Route: 065
  10. TOREM [Concomitant]
     Active Substance: TORSEMIDE
     Route: 048
  11. ISOKET [Concomitant]
     Active Substance: ISOSORBIDE DINITRATE
     Route: 065
  12. ELTROXIN [Concomitant]
     Active Substance: LEVOTHYROXINE
     Route: 065
  13. XARELTO [Suspect]
     Active Substance: RIVAROXABAN
     Indication: ATRIAL FIBRILLATION
     Route: 048
     Dates: start: 2014, end: 201407
  14. BELOC (METOPROLOL TARTRATE) [Concomitant]
     Route: 065
  15. NORVASC [Concomitant]
     Active Substance: AMLODIPINE BESYLATE
     Route: 048
  16. APROVEL [Concomitant]
     Active Substance: IRBESARTAN
     Route: 048

REACTIONS (4)
  - Anaemia [Recovered/Resolved]
  - Ulcer [Recovering/Resolving]
  - Upper gastrointestinal haemorrhage [Recovered/Resolved]
  - Gastritis [Recovering/Resolving]

NARRATIVE: CASE EVENT DATE: 201407
